FAERS Safety Report 6742384-5 (Version None)
Quarter: 2010Q2

REPORT INFORMATION
  Report Type: 
  Country: None (occurrence: None)
  Receive Date: 20100526
  Receipt Date: 20100518
  Transmission Date: 20101027
  Serious: Yes (Other)
  Sender: FDA-Public Use
  Company Number: US-SANOFI-AVENTIS-2010SA029536

PATIENT
  Age: 61 Year
  Sex: Male

DRUGS (4)
  1. LANTUS [Suspect]
     Indication: TYPE 2 DIABETES MELLITUS
     Dosage: DOSE:62 UNIT(S)
     Route: 058
     Dates: start: 20090101
  2. SOLOSTAR [Suspect]
     Dates: start: 20090101
  3. METFORMIN HYDROCHLORIDE [Concomitant]
     Route: 065
  4. HUMALOG [Concomitant]
     Dosage: DOSE:12 UNIT(S)
     Route: 065

REACTIONS (1)
  - COLON CANCER [None]
